FAERS Safety Report 7318391-0 (Version None)
Quarter: 2011Q1

REPORT INFORMATION
  Report Type: 
  Country: None (occurrence: None)
  Receive Date: 20110228
  Receipt Date: 20110215
  Transmission Date: 20110831
  Serious: Yes (Hospitalization, Other)
  Sender: FDA-Public Use
  Company Number: FR-ELI_LILLY_AND_COMPANY-FR201101001562

PATIENT
  Age: 73 Year
  Sex: Male

DRUGS (1)
  1. FORTEO [Suspect]
     Indication: OSTEOPOROSIS
     Dosage: 20 UG, DAILY (1/D)
     Route: 065
     Dates: start: 20100923

REACTIONS (5)
  - STENT PLACEMENT [None]
  - ARTERIAL CATHETERISATION [None]
  - EXERCISE ELECTROCARDIOGRAM ABNORMAL [None]
  - CORONARY ANGIOPLASTY [None]
  - POLLAKIURIA [None]
